FAERS Safety Report 5276098-8 (Version None)
Quarter: 2007Q1

REPORT INFORMATION
  Report Type: 
  Country: None (occurrence: None)
  Receive Date: 20070321
  Receipt Date: 20060828
  Transmission Date: 20070707
  Serious: Yes (Other)
  Sender: FDA-Public Use
  Company Number: 234328K06USA

PATIENT
  Age: 46 Year
  Sex: Female

DRUGS (3)
  1. REBIF [Suspect]
     Indication: MULTIPLE SCLEROSIS
     Dosage: 44 MCG, 3 IN 1 WEEKS, SUBCUTANEOUS
     Route: 058
     Dates: start: 20040105
  2. PROVIGIL [Concomitant]
  3. ALTACE (RAMIPRIL /00885601/) [Concomitant]

REACTIONS (3)
  - DIABETES MELLITUS [None]
  - FALL [None]
  - WRIST FRACTURE [None]
